FAERS Safety Report 7014554-2 (Version None)
Quarter: 2010Q3

REPORT INFORMATION
  Report Type: 
  Country: None (occurrence: None)
  Receive Date: 20100924
  Receipt Date: 20100924
  Transmission Date: 20110219
  Serious: Yes (Other)
  Sender: FDA-Public Use
  Company Number: None

PATIENT
  Age: 29 Year
  Sex: Female
  Weight: 77.1115 kg

DRUGS (1)
  1. CYMBALTA [Suspect]
     Indication: FIBROMYALGIA
     Dosage: 30MG ONCE DAILY PO
     Route: 048
     Dates: start: 20100911, end: 20100911

REACTIONS (11)
  - DIZZINESS [None]
  - HEADACHE [None]
  - HYPERHIDROSIS [None]
  - MYDRIASIS [None]
  - PALPITATIONS [None]
  - PANIC REACTION [None]
  - PHOTOPHOBIA [None]
  - PUPILS UNEQUAL [None]
  - SOMNOLENCE [None]
  - SUFFOCATION FEELING [None]
  - VISION BLURRED [None]
